FAERS Safety Report 15945342 (Version 1)
Quarter: 2019Q1

REPORT INFORMATION
  Report Type: Spontaneous
  Country: US (occurrence: US)
  Receive Date: 20190211
  Receipt Date: 20190211
  Transmission Date: 20190417
  Serious: No
  Sender: FDA-Public Use
  Company Number: US-SA-2019SA031424

PATIENT
  Sex: Male

DRUGS (3)
  1. LANTUS [Suspect]
     Active Substance: INSULIN GLARGINE
     Route: 065
  2. HEROIN [Concomitant]
     Active Substance: DIAMORPHINE
     Route: 065
  3. COCAINE [Concomitant]
     Active Substance: COCAINE
     Route: 065

REACTIONS (1)
  - Blood glucose increased [Unknown]
